FAERS Safety Report 12269711 (Version 2)
Quarter: 2016Q2

REPORT INFORMATION
  Report Type: Spontaneous
  Country: US (occurrence: US)
  Receive Date: 20160414
  Receipt Date: 20160620
  Transmission Date: 20160815
  Serious: Yes (Other)
  Sender: FDA-Public Use
  Company Number: US-ALLERGAN-1653647US

PATIENT
  Age: 57 Year
  Sex: Female
  Weight: 95.24 kg

DRUGS (9)
  1. NORCO [Suspect]
     Active Substance: ACETAMINOPHEN\HYDROCODONE BITARTRATE
     Indication: POLYNEUROPATHY
     Dosage: UNK
     Route: 048
  2. LYRICA [Interacting]
     Active Substance: PREGABALIN
     Indication: BURNING SENSATION
     Dosage: 75 MG, QID
     Route: 048
     Dates: start: 201601
  3. LYRICA [Interacting]
     Active Substance: PREGABALIN
     Indication: PAIN
  4. NORCO [Interacting]
     Active Substance: ACETAMINOPHEN\HYDROCODONE BITARTRATE
     Indication: BACK PAIN
  5. UNISOM SLEEPTABS [Interacting]
     Active Substance: DOXYLAMINE SUCCINATE
     Indication: SLEEP DISORDER
     Dosage: UNK
  6. NORCO [Interacting]
     Active Substance: ACETAMINOPHEN\HYDROCODONE BITARTRATE
     Indication: BURSITIS
  7. ZANAFLEX [Interacting]
     Active Substance: TIZANIDINE HYDROCHLORIDE
     Indication: FIBROMYALGIA
     Dosage: 4 MG, TID
     Route: 048
  8. NORCO [Interacting]
     Active Substance: ACETAMINOPHEN\HYDROCODONE BITARTRATE
     Indication: OSTEOARTHRITIS
  9. TIZANIDINE. [Interacting]
     Active Substance: TIZANIDINE
     Indication: FIBROMYALGIA
     Dosage: 4 MG, TID
     Route: 048

REACTIONS (16)
  - Vision blurred [Recovered/Resolved]
  - Dry mouth [Not Recovered/Not Resolved]
  - Eye discharge [Not Recovered/Not Resolved]
  - Loss of consciousness [Recovering/Resolving]
  - Myalgia [Not Recovered/Not Resolved]
  - Somnolence [Not Recovered/Not Resolved]
  - Inappropriate schedule of drug administration [Unknown]
  - Drug interaction [Unknown]
  - Face injury [Recovering/Resolving]
  - Erythema [Unknown]
  - Incorrect dose administered [Unknown]
  - Eye contusion [Unknown]
  - Skin exfoliation [Unknown]
  - Memory impairment [Recovering/Resolving]
  - Fall [Recovering/Resolving]
  - Weight increased [Not Recovered/Not Resolved]

NARRATIVE: CASE EVENT DATE: 201601
